FAERS Safety Report 16841420 (Version 1)
Quarter: 2019Q3

REPORT INFORMATION
  Report Type: Spontaneous
  Country: JP (occurrence: JP)
  Receive Date: 20190923
  Receipt Date: 20190923
  Transmission Date: 20191005
  Serious: Yes (Other)
  Sender: FDA-Public Use
  Company Number: JP-PFIZER INC-2019401484

PATIENT
  Age: 8 Decade
  Sex: Male

DRUGS (6)
  1. AMPICILLIN SODIUM/SULBACTAM SODIUM [Suspect]
     Active Substance: AMPICILLIN SODIUM\SULBACTAM SODIUM
     Indication: INFECTIVE ANEURYSM
  2. COLISTIN [Concomitant]
     Active Substance: COLISTIN
     Indication: STREPTOCOCCAL SEPSIS
  3. AMPICILLIN SODIUM/SULBACTAM SODIUM [Suspect]
     Active Substance: AMPICILLIN SODIUM\SULBACTAM SODIUM
     Indication: PNEUMONIA
  4. COLISTIN [Concomitant]
     Active Substance: COLISTIN
     Indication: PNEUMONIA
  5. COLISTIN [Concomitant]
     Active Substance: COLISTIN
     Indication: INFECTIVE ANEURYSM
  6. AMPICILLIN SODIUM/SULBACTAM SODIUM [Suspect]
     Active Substance: AMPICILLIN SODIUM\SULBACTAM SODIUM
     Indication: STREPTOCOCCAL SEPSIS

REACTIONS (2)
  - Shock [Unknown]
  - Pyrexia [Unknown]
